FAERS Safety Report 8116251-9 (Version None)
Quarter: 2012Q1

REPORT INFORMATION
  Report Type: 
  Country: None (occurrence: None)
  Receive Date: 20120206
  Receipt Date: 20120130
  Transmission Date: 20120608
  Serious: Yes (Hospitalization, Disabling, Other)
  Sender: FDA-Public Use
  Company Number: RU-BAYER-2012-009439

PATIENT
  Age: 30 Year
  Sex: Female

DRUGS (2)
  1. MIRENA [Suspect]
     Indication: CONTRACEPTION
     Dosage: 20 MCG/24HR, CONT
     Route: 015
     Dates: start: 20101007, end: 20120101
  2. MIRENA [Suspect]
     Indication: ENDOMETRIOSIS

REACTIONS (3)
  - WEIGHT INCREASED [None]
  - HEMIPARESIS [None]
  - ISCHAEMIC STROKE [None]
